FAERS Safety Report 23868179 (Version 1)
Quarter: 2024Q2

REPORT INFORMATION
  Report Type: Spontaneous
  Country: US (occurrence: None)
  Receive Date: 20240516
  Receipt Date: 20240516
  Transmission Date: 20240716
  Serious: Yes (Other)
  Sender: FDA-Public Use
  Company Number: None

PATIENT
  Age: 55 Year
  Sex: Female
  Weight: 69.75 kg

DRUGS (5)
  1. FOLIC ACID [Suspect]
     Active Substance: FOLIC ACID
     Indication: Drug therapy
     Dosage: 1 TABLET DAILY ORAL
     Route: 048
     Dates: start: 20240216, end: 20240514
  2. METHOTREXATE [Concomitant]
     Active Substance: METHOTREXATE
  3. XOLAIR [Concomitant]
     Active Substance: OMALIZUMAB
  4. ALLEGRA [Concomitant]
     Active Substance: FEXOFENADINE HYDROCHLORIDE
  5. PEPCID [Concomitant]
     Active Substance: FAMOTIDINE

REACTIONS (7)
  - Renal disorder [None]
  - Infection [None]
  - Vomiting [None]
  - Tubulointerstitial nephritis [None]
  - Abdominal pain [None]
  - Abdominal discomfort [None]
  - Flank pain [None]

NARRATIVE: CASE EVENT DATE: 20240504
